FAERS Safety Report 5366833-2 (Version None)
Quarter: 2007Q2

REPORT INFORMATION
  Report Type: 
  Country: None (occurrence: None)
  Receive Date: 20070622
  Receipt Date: 20070613
  Transmission Date: 20071010
  Serious: Yes (Hospitalization)
  Sender: FDA-Public Use
  Company Number: US-JNJFOC-20070603229

PATIENT
  Sex: Female

DRUGS (7)
  1. REMICADE [Suspect]
     Dosage: FIRST INFUSION OF RE-TREATMENT
     Route: 042
  2. REMICADE [Suspect]
     Indication: CROHN'S DISEASE
     Route: 042
  3. PENTASA [Concomitant]
     Indication: CROHN'S DISEASE
  4. POTASSIUM ACETATE [Concomitant]
  5. PREMARIN [Concomitant]
     Indication: HORMONE REPLACEMENT THERAPY
  6. BENICAR [Concomitant]
     Indication: BLOOD PRESSURE
  7. THYROID TAB [Concomitant]

REACTIONS (5)
  - ARTHRALGIA [None]
  - BLOOD PRESSURE DECREASED [None]
  - FLUID RETENTION [None]
  - PYREXIA [None]
  - SURGERY [None]
